FAERS Safety Report 5395193-6 (Version None)
Quarter: 2007Q3

REPORT INFORMATION
  Report Type: 
  Country: None (occurrence: None)
  Receive Date: 20070724
  Receipt Date: 20070719
  Transmission Date: 20080115
  Serious: Yes (Hospitalization, Other)
  Sender: FDA-Public Use
  Company Number: US-ASTRAZENECA-2007UW13205

PATIENT
  Age: 11428 Day
  Sex: Male
  Weight: 90.9 kg

DRUGS (10)
  1. SEROQUEL [Suspect]
     Indication: BIPOLAR DISORDER
     Route: 048
     Dates: start: 20051101
  2. SEROQUEL [Suspect]
     Route: 048
  3. SEROQUEL [Suspect]
     Route: 048
  4. WELLBUTRIN [Suspect]
     Indication: DEPRESSION
  5. WELLBUTRIN [Suspect]
  6. DEPAKOTE [Suspect]
     Indication: BIPOLAR DISORDER
     Dosage: 500 MG AM, 1000 MG PM
  7. DEPAKOTE [Suspect]
  8. VALIUM [Suspect]
     Indication: ANXIETY
  9. VALIUM [Suspect]
  10. ATENOLOL [Concomitant]
     Indication: HYPERTENSION

REACTIONS (1)
  - PERICARDIAL EFFUSION [None]
